FAERS Safety Report 11138887 (Version 1)
Quarter: 2015Q2

REPORT INFORMATION
  Report Type: Spontaneous
  Country: US (occurrence: US)
  Receive Date: 20150527
  Receipt Date: 20150527
  Transmission Date: 20150821
  Serious: Yes (Other)
  Sender: FDA-Public Use
  Company Number: US-GLENMARK GENERICS INC.-2015GMK017208

PATIENT

DRUGS (6)
  1. FLUCONAZOLE TABLETS [Suspect]
     Active Substance: FLUCONAZOLE
     Dosage: UNK
     Dates: start: 2014
  2. CLARITIN [Concomitant]
     Active Substance: LORATADINE
     Indication: HYPERSENSITIVITY
     Dosage: UNK
  3. VITAMINA D [Concomitant]
     Indication: PRODUCT USED FOR UNKNOWN INDICATION
     Dosage: UNK
  4. FLUCONAZOLE TABLETS [Suspect]
     Active Substance: FLUCONAZOLE
     Dosage: 1 DF, QD
     Route: 048
     Dates: start: 20150511, end: 20150513
  5. FLUCONAZOLE TABLETS [Suspect]
     Active Substance: FLUCONAZOLE
     Indication: FUNGAL INFECTION
     Dosage: UNK
     Dates: start: 2012
  6. BENADRYL [Concomitant]
     Active Substance: DIPHENHYDRAMINE HYDROCHLORIDE
     Indication: HYPERSENSITIVITY
     Dosage: UNK

REACTIONS (9)
  - Chromaturia [Unknown]
  - Urine odour abnormal [Unknown]
  - Peripheral swelling [Unknown]
  - Burns third degree [Unknown]
  - Fungal skin infection [Not Recovered/Not Resolved]
  - Pollakiuria [Unknown]
  - Fungal infection [Not Recovered/Not Resolved]
  - Drug ineffective [Unknown]
  - Lymphoedema [Not Recovered/Not Resolved]
